FAERS Safety Report 11210332 (Version 1)
Quarter: 2015Q2

REPORT INFORMATION
  Report Type: Report from Study
  Country: NZ (occurrence: NZ)
  Receive Date: 20150622
  Receipt Date: 20150622
  Transmission Date: 20150821
  Serious: Yes (Other)
  Sender: FDA-Public Use
  Company Number: NZ-BAXTER-2015BAX032946

PATIENT
  Sex: Female

DRUGS (6)
  1. METRONIDAZOLE, 500MG/100ML, SOLUTION FOR INFUSION [Suspect]
     Active Substance: METRONIDAZOLE
     Indication: INFECTION
  2. AMOXICILLIN. [Suspect]
     Active Substance: AMOXICILLIN
     Indication: INFECTION
  3. GENTAMICIN. [Suspect]
     Active Substance: GENTAMICIN
     Indication: APPENDICITIS
     Dosage: 6 TO 7.5 MG PER KG MAXIMUM 320 MG PER DOSE
     Route: 042
  4. METRONIDAZOLE, 500MG/100ML, SOLUTION FOR INFUSION [Suspect]
     Active Substance: METRONIDAZOLE
     Indication: APPENDICITIS
     Dosage: 7.5 MG PER KG MAXIMUM 500 MG PER DOSE
     Route: 042
  5. AMOXICILLIN. [Suspect]
     Active Substance: AMOXICILLIN
     Indication: APPENDICITIS
     Dosage: 20 OR 25 MG PER KG MAXIMUM 1 GRAM PER DOSE
     Route: 042
  6. GENTAMICIN. [Suspect]
     Active Substance: GENTAMICIN
     Indication: INFECTION

REACTIONS (1)
  - Anaphylactic reaction [Unknown]
